FAERS Safety Report 25021289 (Version 1)
Quarter: 2025Q1

REPORT INFORMATION
  Report Type: Spontaneous
  Country: CN (occurrence: CN)
  Receive Date: 20250228
  Receipt Date: 20250228
  Transmission Date: 20250409
  Serious: Yes (Life-Threatening, Other)
  Sender: ROCHE
  Company Number: CN-ROCHE-10000212494

PATIENT
  Age: 65 Year
  Sex: Male

DRUGS (1)
  1. COLUMVI [Suspect]
     Active Substance: GLOFITAMAB-GXBM
     Indication: Burkitt^s lymphoma
     Route: 065

REACTIONS (7)
  - Off label use [Unknown]
  - Cytokine release syndrome [Unknown]
  - Renal failure [Unknown]
  - Intestinal perforation [Unknown]
  - Tumour lysis syndrome [Unknown]
  - Incorrect drug administration rate [Unknown]
  - Device use error [Unknown]
